FAERS Safety Report 7292691-5 (Version None)
Quarter: 2011Q1

REPORT INFORMATION
  Report Type: 
  Country: None (occurrence: None)
  Receive Date: 20110215
  Receipt Date: 20110204
  Transmission Date: 20110831
  Serious: Yes (Hospitalization)
  Sender: FDA-Public Use
  Company Number: PHHY2011IT09381

PATIENT
  Sex: Male

DRUGS (1)
  1. TEGRETOL [Suspect]
     Dosage: 1500 MG, DAILY
     Route: 048
     Dates: start: 20101123, end: 20101124

REACTIONS (4)
  - SOPOR [None]
  - VOMITING [None]
  - INCORRECT DOSE ADMINISTERED [None]
  - ATAXIA [None]
